FAERS Safety Report 4306888-7 (Version None)
Quarter: 2004Q1

REPORT INFORMATION
  Report Type: 
  Country: None (occurrence: None)
  Receive Date: 20040227
  Receipt Date: 20040217
  Transmission Date: 20041129
  Serious: Yes (Death)
  Sender: FDA-Public Use
  Company Number: ZA-GLAXOSMITHKLINE-B0323712A

PATIENT
  Sex: Male

DRUGS (2)
  1. ZYBAN [Suspect]
     Dosage: 150MG TWICE PER DAY
     Route: 065
     Dates: start: 20040201, end: 20040201
  2. INHALERS [Concomitant]

REACTIONS (4)
  - CIRCULATORY COLLAPSE [None]
  - DYSPNOEA [None]
  - RASH [None]
  - STATUS ASTHMATICUS [None]
